FAERS Safety Report 19075028 (Version 1)
Quarter: 2021Q1

REPORT INFORMATION
  Report Type: Spontaneous
  Country: US (occurrence: US)
  Receive Date: 20210330
  Receipt Date: 20210330
  Transmission Date: 20210420
  Serious: No
  Sender: FDA-Public Use
  Company Number: US-ROCHE-2702354

PATIENT
  Age: 86 Year
  Sex: Male

DRUGS (1)
  1. ERIVEDGE [Suspect]
     Active Substance: VISMODEGIB
     Indication: PRODUCT USED FOR UNKNOWN INDICATION
     Route: 048
     Dates: start: 20191104, end: 20201023

REACTIONS (4)
  - Alopecia [Unknown]
  - Drug intolerance [Unknown]
  - Hypophagia [Unknown]
  - Asthenia [Unknown]

NARRATIVE: CASE EVENT DATE: 20201023
